FAERS Safety Report 25040285 (Version 4)
Quarter: 2025Q3

REPORT INFORMATION
  Report Type: Report from Study
  Country: US (occurrence: US)
  Receive Date: 20250305
  Receipt Date: 20250919
  Transmission Date: 20251020
  Serious: No
  Sender: SUNOVION
  Company Number: US-SUMITOMO PHARMA SWITZERLAND GMBH-2025SPA001425

PATIENT
  Age: 79 Year
  Sex: Male

DRUGS (2)
  1. ORGOVYX [Suspect]
     Active Substance: RELUGOLIX
     Indication: Prostate cancer
     Dosage: 120 MG, QD...STARTED WITH BIOLOGIC
     Route: 048
     Dates: start: 20250124
  2. XTANDI [Concomitant]
     Active Substance: ENZALUTAMIDE
     Indication: Product used for unknown indication

REACTIONS (12)
  - Flatulence [Unknown]
  - Micturition urgency [Unknown]
  - Oliguria [Unknown]
  - Feeding disorder [Unknown]
  - Fear of death [Unknown]
  - Mental disorder [Unknown]
  - Decreased activity [Unknown]
  - Hot flush [Unknown]
  - Hyperhidrosis [Unknown]
  - Back pain [Recovered/Resolved]
  - Fatigue [Unknown]
  - Incorrect dose administered [Recovered/Resolved]

NARRATIVE: CASE EVENT DATE: 20250908
